FAERS Safety Report 17611778 (Version 3)
Quarter: 2020Q3

REPORT INFORMATION
  Report Type: Spontaneous
  Country: US (occurrence: US)
  Receive Date: 20200401
  Receipt Date: 20200922
  Transmission Date: 20201102
  Serious: Yes (Hospitalization, Other)
  Sender: FDA-Public Use
  Company Number: US-ASTRAZENECA-2020SE42011

PATIENT
  Age: 749 Month
  Sex: Female
  Weight: 106.1 kg

DRUGS (61)
  1. CYCLOBENZAPRINE. [Concomitant]
     Active Substance: CYCLOBENZAPRINE
  2. LANTUS [Concomitant]
     Active Substance: INSULIN GLARGINE
  3. LISINOPRIL. [Concomitant]
     Active Substance: LISINOPRIL
     Indication: BLOOD PRESSURE ABNORMAL
     Dates: start: 2011
  4. NAPROXEN. [Concomitant]
     Active Substance: NAPROXEN
  5. DIOVAN [Concomitant]
     Active Substance: VALSARTAN
  6. CEPHALEXIN. [Concomitant]
     Active Substance: CEPHALEXIN
  7. CHLORTHALIDONE. [Concomitant]
     Active Substance: CHLORTHALIDONE
  8. IBUPROFEN. [Concomitant]
     Active Substance: IBUPROFEN
  9. FLUCONAZOLE. [Concomitant]
     Active Substance: FLUCONAZOLE
  10. METOPROLOL SUCCINATE. [Concomitant]
     Active Substance: METOPROLOL SUCCINATE
  11. DOXYCYCL HYC [Concomitant]
  12. BENZONATATE. [Concomitant]
     Active Substance: BENZONATATE
  13. DOXERCALCIFEROL. [Concomitant]
     Active Substance: DOXERCALCIFEROL
  14. METRONIDAZOLE. [Concomitant]
     Active Substance: METRONIDAZOLE
  15. DIAZEPAM. [Concomitant]
     Active Substance: DIAZEPAM
  16. RIBAVIRIN. [Concomitant]
     Active Substance: RIBAVIRIN
  17. HYDROCO/APAP [Concomitant]
     Active Substance: ACETAMINOPHEN\HYDROCODONE
  18. LEXAPRO [Concomitant]
     Active Substance: ESCITALOPRAM OXALATE
  19. CLONIDINE. [Concomitant]
     Active Substance: CLONIDINE
  20. AMOXICILLIN. [Concomitant]
     Active Substance: AMOXICILLIN
  21. CARVEDILOL. [Concomitant]
     Active Substance: CARVEDILOL
  22. CLOPIDOGREL [Concomitant]
     Active Substance: CLOPIDOGREL BISULFATE
  23. TAMIFLU [Concomitant]
     Active Substance: OSELTAMIVIR PHOSPHATE
  24. NEXIUM [Suspect]
     Active Substance: ESOMEPRAZOLE MAGNESIUM
     Indication: GASTROOESOPHAGEAL REFLUX DISEASE
     Route: 048
     Dates: start: 20100104
  25. PEGASYS [Concomitant]
     Active Substance: PEGINTERFERON ALFA-2A
  26. CIPROFLOXACIN. [Concomitant]
     Active Substance: CIPROFLOXACIN
  27. APAP/CODEINE [Concomitant]
     Active Substance: ACETAMINOPHEN\CODEINE PHOSPHATE
  28. LAMICTAL [Concomitant]
     Active Substance: LAMOTRIGINE
  29. PROMETHEGAN [Concomitant]
     Active Substance: PROMETHAZINE HYDROCHLORIDE
  30. HCTZ [Concomitant]
     Active Substance: HYDROCHLOROTHIAZIDE
  31. NOVOLOG [Concomitant]
     Active Substance: INSULIN ASPART
  32. CHERATUSSIN [Concomitant]
     Active Substance: AMMONIUM CHLORIDE\DEXTROMETHORPHAN\SODIUM CITRATE
  33. SEVELAMER [Concomitant]
     Active Substance: SEVELAMER
  34. PHENAZOPYRIDINE. [Concomitant]
     Active Substance: PHENAZOPYRIDINE
  35. INCIVEK [Concomitant]
     Active Substance: TELAPREVIR
  36. COMBIVENT [Concomitant]
     Active Substance: ALBUTEROL SULFATE\IPRATROPIUM BROMIDE
  37. SULFAMETH/TRIMETHOPRIM [Concomitant]
     Active Substance: SULFAMETHOXAZOLE\TRIMETHOPRIM
  38. FLUOCINONIDE. [Concomitant]
     Active Substance: FLUOCINONIDE
  39. NEXIUM [Suspect]
     Active Substance: ESOMEPRAZOLE MAGNESIUM
     Indication: GASTROOESOPHAGEAL REFLUX DISEASE
     Route: 048
     Dates: start: 20130612
  40. AZITHROMYCIN ANHYDROUS. [Concomitant]
     Active Substance: AZITHROMYCIN ANHYDROUS
  41. PREDNISONE. [Concomitant]
     Active Substance: PREDNISONE
  42. SIMVASTATIN. [Concomitant]
     Active Substance: SIMVASTATIN
  43. METOPROLOL TARTRATE. [Concomitant]
     Active Substance: METOPROLOL TARTRATE
  44. NEXIUM [Suspect]
     Active Substance: ESOMEPRAZOLE MAGNESIUM
     Indication: GASTROOESOPHAGEAL REFLUX DISEASE
     Route: 048
     Dates: start: 201001, end: 201411
  45. AMLODIPINE [Concomitant]
     Active Substance: AMLODIPINE BESYLATE
  46. HUMALOG [Concomitant]
     Active Substance: INSULIN LISPRO
  47. ANTIPY/BENZO SOL OTIC [Concomitant]
  48. TRAMADOL. [Concomitant]
     Active Substance: TRAMADOL
  49. CRESTOR [Concomitant]
     Active Substance: ROSUVASTATIN CALCIUM
     Indication: CHOLESTEROSIS
     Dates: start: 2011
  50. PROAIR HFA [Concomitant]
     Active Substance: ALBUTEROL SULFATE
  51. FUROSEMIDE. [Concomitant]
     Active Substance: FUROSEMIDE
  52. OMEPRAZOLE. [Concomitant]
     Active Substance: OMEPRAZOLE
  53. NASONEX [Concomitant]
     Active Substance: MOMETASONE FUROATE
  54. LEVAQUIN [Concomitant]
     Active Substance: LEVOFLOXACIN
  55. GABAPENTIN. [Concomitant]
     Active Substance: GABAPENTIN
  56. MUPIROCIN. [Concomitant]
     Active Substance: MUPIROCIN
  57. NEXIUM [Suspect]
     Active Substance: ESOMEPRAZOLE MAGNESIUM
     Indication: GASTROOESOPHAGEAL REFLUX DISEASE
     Route: 048
     Dates: start: 201001, end: 201406
  58. TERCONAZOLE. [Concomitant]
     Active Substance: TERCONAZOLE
  59. FLOVENT HFA [Concomitant]
     Active Substance: FLUTICASONE PROPIONATE
  60. ABILIFY [Concomitant]
     Active Substance: ARIPIPRAZOLE
  61. ZOSTAVAX [Concomitant]
     Active Substance: VARICELLA-ZOSTER VIRUS STRAIN OKA/MERCK LIVE ANTIGEN

REACTIONS (9)
  - Acute kidney injury [Unknown]
  - Metabolic acidosis [Unknown]
  - End stage renal disease [Unknown]
  - Renal injury [Unknown]
  - Hyperparathyroidism secondary [Unknown]
  - Renal tubular necrosis [Unknown]
  - Renal failure [Unknown]
  - Nephrogenic anaemia [Unknown]
  - Chronic kidney disease [Not Recovered/Not Resolved]

NARRATIVE: CASE EVENT DATE: 201403
